FAERS Safety Report 4682631-7 (Version None)
Quarter: 2005Q2

REPORT INFORMATION
  Report Type: 
  Country: None (occurrence: None)
  Receive Date: 20050606
  Receipt Date: 20050421
  Transmission Date: 20051028
  Serious: Yes (Congenital Anomaly)
  Sender: FDA-Public Use
  Company Number: US-GLAXOSMITHKLINE-A0555220A

PATIENT
  Sex: Male
  Weight: 4.1 kg

DRUGS (1)
  1. PAXIL CR [Suspect]
     Indication: ANXIETY DISORDER
     Dosage: 12.5MG PER DAY
     Dates: start: 20021220

REACTIONS (6)
  - CONGENITAL ANOMALY [None]
  - CONGENITAL URETERIC ANOMALY [None]
  - DRUG EXPOSURE DURING PREGNANCY [None]
  - DRUG EXPOSURE VIA BREAST MILK [None]
  - HYDRONEPHROSIS [None]
  - KIDNEY MALFORMATION [None]
